FAERS Safety Report 4989056-5 (Version None)
Quarter: 2006Q2

REPORT INFORMATION
  Report Type: 
  Country: None (occurrence: None)
  Receive Date: 20060425
  Receipt Date: 20060407
  Transmission Date: 20061013
  Serious: Yes (Hospitalization)
  Sender: FDA-Public Use
  Company Number: 224262

PATIENT
  Age: 50 Year
  Sex: Female

DRUGS (6)
  1. AVASTIN [Suspect]
     Indication: COLORECTAL CANCER
     Dosage: 495 MG, Q3W, INTRAVENOUS
     Route: 042
     Dates: start: 20060111
  2. CAPECITABINE(CAPECITABINE) [Suspect]
     Indication: COLORECTAL CANCER
     Dosage: 1300 QD, ORAL
     Route: 048
     Dates: start: 20060111
  3. OXALIPLATIN(OXALIPLATIN) [Suspect]
     Indication: COLORECTAL CANCER
     Dosage: 230 MG , Q3W, INTRAVENOUS
     Route: 042
     Dates: start: 20060111
  4. PRIMPERAN ELIXIR [Concomitant]
  5. KYTRIL [Concomitant]
  6. LORAZEPAM [Concomitant]

REACTIONS (1)
  - HYPERSENSITIVITY [None]
